FAERS Safety Report 12652886 (Version 1)
Quarter: 2016Q3

REPORT INFORMATION
  Report Type: Spontaneous
  Country: TN (occurrence: TN)
  Receive Date: 20160815
  Receipt Date: 20160815
  Transmission Date: 20161109
  Serious: Yes (Death, Other)
  Sender: FDA-Public Use
  Company Number: TN-BAYER-2016-152306

PATIENT
  Age: 50 Year
  Sex: Male

DRUGS (1)
  1. DACARBAZINE. [Suspect]
     Active Substance: DACARBAZINE

REACTIONS (1)
  - Sepsis [Fatal]
